FAERS Safety Report 6371206-X (Version None)
Quarter: 2009Q3

REPORT INFORMATION
  Report Type: 
  Country: None (occurrence: None)
  Receive Date: 20090923
  Receipt Date: 20071113
  Transmission Date: 20100115
  Serious: Yes (Other)
  Sender: FDA-Public Use
  Company Number: US-ASTRAZENECA-2007UW03826

PATIENT
  Age: 53 Year
  Sex: Male

DRUGS (17)
  1. SEROQUEL [Suspect]
     Indication: DEPRESSION
     Dosage: 200-400 MG, DAILY
     Route: 048
     Dates: start: 19990423
  2. SEROQUEL [Suspect]
     Dosage: 25-300 MG
     Route: 048
     Dates: start: 20030919
  3. AVANDIA [Concomitant]
     Route: 048
  4. FLUOXETINE [Concomitant]
     Route: 048
  5. ISOSORBIDE MONONITRATE [Concomitant]
     Route: 048
  6. LORAZEPAM [Concomitant]
     Route: 048
  7. LORAZEPAM [Concomitant]
  8. STARLIX [Concomitant]
     Route: 048
  9. METFORMIN HCL [Concomitant]
     Dosage: 500-1000 MG
     Route: 048
  10. HYZAAR [Concomitant]
     Dosage: 12.5-100 MG
     Route: 048
  11. PROTONIX [Concomitant]
     Route: 048
  12. HALOPERIDOL [Concomitant]
     Dosage: 5 MG/ML
     Route: 065
  13. PROMETHAZINE [Concomitant]
     Dosage: 25-50 MG
     Route: 065
  14. CLONAZEPAM [Concomitant]
     Dosage: 0.5 - 1 MG
     Route: 048
  15. FUROSEMIDE [Concomitant]
     Route: 048
  16. NITROGLYCERIN [Concomitant]
     Route: 048
  17. PRILOSEC OTC [Concomitant]
     Route: 048

REACTIONS (2)
  - PANCREATITIS ACUTE [None]
  - TYPE 2 DIABETES MELLITUS [None]
